FAERS Safety Report 4763589-9 (Version None)
Quarter: 2005Q3

REPORT INFORMATION
  Report Type: 
  Country: None (occurrence: None)
  Receive Date: 20050908
  Receipt Date: 20050729
  Transmission Date: 20060218
  Serious: Yes (Other)
  Sender: FDA-Public Use
  Company Number: US-MERCK-0508USA00424

PATIENT
  Age: 57 Year
  Sex: Female
  Weight: 82 kg

DRUGS (13)
  1. VIOXX [Suspect]
     Indication: ARTHRITIS
     Route: 048
     Dates: start: 20010301, end: 20030501
  2. IBUPROFEN [Concomitant]
     Route: 048
  3. IBUPROFEN [Concomitant]
     Route: 048
  4. PREVACID [Concomitant]
     Route: 048
  5. PREVACID [Concomitant]
     Route: 048
  6. ESTRACE [Concomitant]
     Route: 048
  7. RANITIDINE-BC [Concomitant]
     Route: 048
  8. METOCLOPRAMIDE [Concomitant]
     Route: 048
  9. ZOLOFT [Concomitant]
     Route: 048
  10. IMITREX [Concomitant]
     Route: 048
  11. TYLENOL [Concomitant]
     Route: 048
  12. NAPROXEN [Concomitant]
     Route: 048
  13. HYDROCODONE BITARTRATE + ACETAMINOPHEN [Concomitant]
     Route: 048

REACTIONS (1)
  - CEREBROVASCULAR ACCIDENT [None]
